FAERS Safety Report 7242253-0 (Version None)
Quarter: 2011Q1

REPORT INFORMATION
  Report Type: 
  Country: None (occurrence: None)
  Receive Date: 20110124
  Receipt Date: 20110114
  Transmission Date: 20110831
  Serious: Yes (Other)
  Sender: FDA-Public Use
  Company Number: US-AMGEN-USASP2011002594

PATIENT
  Age: 54 Year
  Sex: Female

DRUGS (1)
  1. ENBREL [Suspect]
     Indication: RHEUMATOID ARTHRITIS
     Dosage: 50 MG, Q3WK
     Dates: start: 20061001, end: 20101115

REACTIONS (6)
  - RHEUMATOID ARTHRITIS [None]
  - DRUG HYPERSENSITIVITY [None]
  - SINUSITIS [None]
  - PRURITUS ALLERGIC [None]
  - URTICARIA [None]
  - ERYTHEMA [None]
